FAERS Safety Report 7074737-2 (Version None)
Quarter: 2010Q4

REPORT INFORMATION
  Report Type: 
  Country: None (occurrence: None)
  Receive Date: 20101029
  Receipt Date: 20101021
  Transmission Date: 20110411
  Serious: Yes (Hospitalization)
  Sender: FDA-Public Use
  Company Number: GR-RB-014915-10

PATIENT
  Age: 33 Year
  Sex: Male

DRUGS (3)
  1. SUBOXONE [Suspect]
     Indication: DRUG DEPENDENCE
     Route: 065
     Dates: start: 20090401
  2. SUBOXONE [Suspect]
     Route: 065
  3. INTERFERON [Suspect]
     Indication: HEPATITIS C
     Dosage: DOSING DETAILS UNKNOWN.
     Route: 065

REACTIONS (2)
  - HYPERTENSION [None]
  - PULMONARY HYPERTENSION [None]
